FAERS Safety Report 13175180 (Version 2)
Quarter: 2017Q1

REPORT INFORMATION
  Report Type: Spontaneous
  Country: US (occurrence: US)
  Receive Date: 20170201
  Receipt Date: 20170203
  Transmission Date: 20170428
  Serious: Yes (Other)
  Sender: FDA-Public Use
  Company Number: US-SA-2016SA234800

PATIENT
  Age: 56 Year
  Sex: Female
  Weight: 56.69 kg

DRUGS (1)
  1. UNISOM SLEEPTABS [Suspect]
     Active Substance: DOXYLAMINE SUCCINATE
     Indication: MIDDLE INSOMNIA
     Dosage: FORM: SOFT GEL?DOSAGE: 1 SOFT GEL USED 1 DAY
     Route: 065
     Dates: start: 20161220, end: 20161220

REACTIONS (3)
  - Suffocation feeling [Recovered/Resolved]
  - Ocular hyperaemia [Recovering/Resolving]
  - Eye haemorrhage [Unknown]

NARRATIVE: CASE EVENT DATE: 20161220
